FAERS Safety Report 8556965-X (Version None)
Quarter: 2012Q3

REPORT INFORMATION
  Report Type: 
  Country: None (occurrence: None)
  Receive Date: 20120801
  Receipt Date: 20120726
  Transmission Date: 20120928
  Serious: Yes (Hospitalization)
  Sender: FDA-Public Use
  Company Number: FI-AMGEN-FINSP2012032052

PATIENT
  Age: 62 Year
  Sex: Female

DRUGS (6)
  1. NEULASTA [Suspect]
     Dosage: UNK
     Dates: start: 20120519
  2. DOCETAXEL [Concomitant]
     Indication: METASTASIS
     Dosage: 80 MG/M2, UNK
     Route: 042
     Dates: start: 20120428
  3. NEULASTA [Suspect]
     Dosage: UNK
     Dates: start: 20120521
  4. NEUPOGEN [Suspect]
     Indication: CHEMOTHERAPY
     Dosage: UNK
     Dates: start: 20120721
  5. NEULASTA [Suspect]
     Indication: CHEMOTHERAPY
     Dosage: UNK
     Route: 058
     Dates: start: 20120428, end: 20120611
  6. NEULASTA [Suspect]
     Dosage: UNK
     Dates: start: 20120611

REACTIONS (14)
  - PAIN IN EXTREMITY [None]
  - DYSPNOEA [None]
  - GAIT DISTURBANCE [None]
  - STOMATITIS [None]
  - CANDIDIASIS [None]
  - DYSPHAGIA [None]
  - INSOMNIA [None]
  - OEDEMA PERIPHERAL [None]
  - MALAISE [None]
  - HYPOTENSION [None]
  - CONSTIPATION [None]
  - BONE PAIN [None]
  - MYALGIA [None]
  - MUSCULOSKELETAL STIFFNESS [None]
